FAERS Safety Report 7045982-7 (Version None)
Quarter: 2010Q4

REPORT INFORMATION
  Report Type: 
  Country: None (occurrence: None)
  Receive Date: 20101014
  Receipt Date: 20101006
  Transmission Date: 20110411
  Serious: Yes (Life-Threatening)
  Sender: FDA-Public Use
  Company Number: IT-PFIZER INC-2010123974

PATIENT
  Age: 49 Year
  Sex: Female

DRUGS (1)
  1. DEPO-MEDROL [Suspect]
     Indication: ARTHRALGIA
     Dosage: 1 ML, TOTAL
     Route: 014
     Dates: start: 20100811, end: 20100811

REACTIONS (1)
  - ANAPHYLACTIC REACTION [None]
